FAERS Safety Report 9521410 (Version 1)
Quarter: 2013Q1

REPORT INFORMATION
  Report Type: Spontaneous
  Country: US (occurrence: None)
  Receive Date: 20130305
  Receipt Date: 20130305
  Transmission Date: 20140127
  Serious: Yes (Hospitalization, Other)
  Sender: FDA-Public Use
  Company Number: 163-21880-12072207

PATIENT
  Age: 65 Year
  Sex: Female
  Weight: 52.16 kg

DRUGS (9)
  1. REVLIMID [Suspect]
     Indication: PLASMA CELL MYELOMA
     Route: 048
     Dates: start: 200912
  2. ACYCLOVIR (ACICLOVIR) (ACICLOVIR) [Concomitant]
  3. ASPIRIN (ACETYLSALICYLIC ACID) [Concomitant]
  4. CAL-CITRATE D (CALCIUM CITRATE W/COLECALCIFEROL) [Concomitant]
  5. VITAMINS [Concomitant]
  6. NEURONTIN (GABAPENTIN) [Concomitant]
  7. OMEGA 3 (FISH OIL) [Concomitant]
  8. VITAMIN B COMPLEX (B-KOMPLEX ^LECIVA^) [Concomitant]
  9. VITAMIN D (ERGOCALCIFEROL) [Concomitant]

REACTIONS (2)
  - White blood cell count decreased [None]
  - Pneumonia [None]
